FAERS Safety Report 7500505-0 (Version None)
Quarter: 2011Q2

REPORT INFORMATION
  Report Type: 
  Country: None (occurrence: None)
  Receive Date: 20110524
  Receipt Date: 20110516
  Transmission Date: 20111010
  Serious: No
  Sender: FDA-Public Use
  Company Number: US-PFIZER INC-2011106803

PATIENT
  Sex: Female
  Weight: 78.5 kg

DRUGS (6)
  1. CORTISONE ACETATE [Suspect]
     Indication: RASH
  2. CALAMINE LOTION [Suspect]
     Indication: URTICARIA
     Dosage: UNK
  3. CORTISONE ACETATE [Suspect]
     Indication: PRURITUS
  4. CALAMINE LOTION [Suspect]
     Indication: RASH
  5. CALAMINE LOTION [Suspect]
     Indication: PRURITUS
  6. CORTISONE ACETATE [Suspect]
     Indication: URTICARIA
     Dosage: UNK

REACTIONS (1)
  - DRUG INEFFECTIVE [None]
